FAERS Safety Report 25082954 (Version 2)
Quarter: 2025Q3

REPORT INFORMATION
  Report Type: Report from Study
  Country: US (occurrence: US)
  Receive Date: 20250317
  Receipt Date: 20250809
  Transmission Date: 20251020
  Serious: Yes (Hospitalization)
  Sender: ALEXION PHARMACEUTICALS
  Company Number: US-AstraZeneca-CH-00824412A

PATIENT
  Sex: Female

DRUGS (1)
  1. OLAPARIB [Suspect]
     Active Substance: OLAPARIB
     Indication: Breast cancer female
     Dosage: 300 MILLIGRAM, BID
     Dates: start: 20230620

REACTIONS (8)
  - Muscular weakness [Unknown]
  - Gait inability [Unknown]
  - Burning sensation [Unknown]
  - Skin exfoliation [Unknown]
  - Eating disorder symptom [Unknown]
  - Peripheral swelling [Unknown]
  - Poor peripheral circulation [Unknown]
  - Pleural effusion [Unknown]
